FAERS Safety Report 4697158-6 (Version None)
Quarter: 2005Q2

REPORT INFORMATION
  Report Type: 
  Country: None (occurrence: None)
  Receive Date: 20050621
  Receipt Date: 20050621
  Transmission Date: 20051028
  Serious: Yes (Other)
  Sender: FDA-Public Use
  Company Number: None

PATIENT
  Age: 55 Year
  Sex: Male
  Weight: 74.3899 kg

DRUGS (7)
  1. NEURONTIN [Suspect]
     Indication: PAIN
     Dosage: TID ORAL X 3 DAY
     Dates: start: 20050603, end: 20050607
  2. VALPROIC ACID [Concomitant]
  3. MOOD STABILIZER [Concomitant]
  4. RANITIDINE [Concomitant]
  5. FELODIPINE [Concomitant]
  6. PRILOSEC [Concomitant]
  7. METOPROLOL [Concomitant]

REACTIONS (3)
  - CONFUSIONAL STATE [None]
  - DYSARTHRIA [None]
  - VERTIGO [None]
